FAERS Safety Report 26064193 (Version 1)
Quarter: 2025Q4

REPORT INFORMATION
  Report Type: Spontaneous
  Country: US (occurrence: US)
  Receive Date: 20251119
  Receipt Date: 20251119
  Transmission Date: 20260118
  Serious: Yes (Other)
  Sender: RANBAXY
  Company Number: US-SUN PHARMACEUTICAL INDUSTRIES LTD-2025R1-536562

PATIENT
  Age: 77 Year
  Sex: Male

DRUGS (4)
  1. TERBINAFINE [Suspect]
     Active Substance: TERBINAFINE
     Indication: Antifungal prophylaxis
     Dosage: UNK
     Route: 048
  2. CLOTRIMAZOLE [Suspect]
     Active Substance: CLOTRIMAZOLE
     Indication: Antifungal prophylaxis
     Dosage: UNK
     Route: 061
  3. KETOCONAZOLE [Suspect]
     Active Substance: KETOCONAZOLE
     Indication: Antifungal prophylaxis
     Dosage: UNK
     Route: 061
  4. TRIAMCINOLONE [Suspect]
     Active Substance: TRIAMCINOLONE
     Indication: Antifungal prophylaxis
     Dosage: UNK
     Route: 061

REACTIONS (1)
  - Therapy partial responder [Unknown]
